FAERS Safety Report 15634786 (Version 2)
Quarter: 2018Q4

REPORT INFORMATION
  Report Type: Report from Study
  Country: BR (occurrence: BR)
  Receive Date: 20181119
  Receipt Date: 20181205
  Transmission Date: 20190205
  Serious: Yes (Other)
  Sender: FDA-Public Use
  Company Number: BR-TAKEDA-2018TUS007285

PATIENT
  Age: 58 Year
  Sex: Female

DRUGS (2)
  1. VEDOLIZUMAB [Suspect]
     Active Substance: VEDOLIZUMAB
     Indication: CROHN^S DISEASE
     Dosage: 300 MG, UNK
     Route: 042
     Dates: start: 20180313
  2. PREDNISOLONE. [Concomitant]
     Active Substance: PREDNISOLONE
     Indication: ANAL FISTULA
     Dosage: UNK UNK, QD

REACTIONS (10)
  - Dyspnoea [Unknown]
  - Secretion discharge [Unknown]
  - Diverticulitis [Unknown]
  - Sneezing [Unknown]
  - Condition aggravated [Unknown]
  - Influenza [Unknown]
  - Nasal congestion [Unknown]
  - Anal fistula [Unknown]
  - Frequent bowel movements [Unknown]
  - Rhinitis [Unknown]

NARRATIVE: CASE EVENT DATE: 20180314
